FAERS Safety Report 6634383-9 (Version None)
Quarter: 2010Q1

REPORT INFORMATION
  Report Type: 
  Country: None (occurrence: None)
  Receive Date: 20100315
  Receipt Date: 20100304
  Transmission Date: 20100710
  Serious: Yes (Other)
  Sender: FDA-Public Use
  Company Number: JP-ROCHE-663691

PATIENT
  Age: 6 Year
  Sex: Female

DRUGS (9)
  1. CELLCEPT [Suspect]
     Indication: PROPHYLAXIS AGAINST TRANSPLANT REJECTION
     Route: 048
  2. TACROLIMUS HYDRATE [Concomitant]
     Dosage: FORM: ORAL FORMULATION (NOS)
     Route: 048
  3. SIMULECT [Concomitant]
     Dosage: ROUTE: INTRAVENOUS (NOS)
     Route: 042
  4. MEDROL [Concomitant]
     Route: 048
  5. PREDNISOLONE [Concomitant]
     Dosage: FORM: ORAL FORMULATION (NOS)
     Route: 048
  6. METHYLPREDNISOLONE SODIUM SUCCINATE [Concomitant]
     Dosage: ROUTE: INTRAVENOUS DRIP
     Route: 042
  7. CYCLOSPORINE [Concomitant]
  8. AZATHIOPRINE [Concomitant]
     Route: 048
  9. BREDININ [Concomitant]
     Route: 048

REACTIONS (1)
  - FOCAL SEGMENTAL GLOMERULOSCLEROSIS [None]
